FAERS Safety Report 24932541 (Version 1)
Quarter: 2025Q1

REPORT INFORMATION
  Report Type: Report from Study
  Country: US (occurrence: US)
  Receive Date: 20250205
  Receipt Date: 20250205
  Transmission Date: 20250408
  Serious: No
  Sender: EXELIXIS
  Company Number: US-EXELIXIS-CABO-24081115

PATIENT
  Age: 73 Year
  Sex: Male

DRUGS (1)
  1. CABOMETYX [Suspect]
     Active Substance: CABOZANTINIB S-MALATE
     Indication: Renal cancer
     Dosage: 40 MG, QD
     Route: 048

REACTIONS (9)
  - Hypercoagulation [Recovering/Resolving]
  - Blister [Recovering/Resolving]
  - Rash [Recovered/Resolved]
  - Weight decreased [Recovering/Resolving]
  - Taste disorder [Recovering/Resolving]
  - Eating disorder [Recovering/Resolving]
  - Sticky skin [Unknown]
  - Fall [Unknown]
  - Gait disturbance [Unknown]

NARRATIVE: CASE EVENT DATE: 20240401
